FAERS Safety Report 7631490-9 (Version None)
Quarter: 2011Q3

REPORT INFORMATION
  Report Type: 
  Country: None (occurrence: None)
  Receive Date: 20110725
  Receipt Date: 20110719
  Transmission Date: 20111222
  Serious: Yes (Other)
  Sender: FDA-Public Use
  Company Number: US-AMGEN-USASP2011029235

PATIENT
  Age: 59 Year
  Sex: Male

DRUGS (2)
  1. NPLATE [Suspect]
     Dates: end: 20110620
  2. NPLATE [Suspect]
     Indication: IDIOPATHIC THROMBOCYTOPENIC PURPURA
     Dosage: 1000 A?G/KG, QWK
     Dates: start: 20110125, end: 20110614

REACTIONS (6)
  - HAEMATOMA [None]
  - HAEMATOLOGICAL MALIGNANCY [None]
  - MYELOFIBROSIS [None]
  - THROMBOCYTOPENIA [None]
  - THERAPEUTIC RESPONSE DECREASED [None]
  - BONE MARROW RETICULIN FIBROSIS [None]
